FAERS Safety Report 10375954 (Version 1)
Quarter: 2014Q3

REPORT INFORMATION
  Report Type: Spontaneous
  Country: IT (occurrence: IT)
  Receive Date: 20140811
  Receipt Date: 20140811
  Transmission Date: 20150326
  Serious: Yes (Hospitalization)
  Sender: FDA-Public Use
  Company Number: IT-ELI_LILLY_AND_COMPANY-IT201408001844

PATIENT
  Age: 75 Year
  Sex: Male

DRUGS (14)
  1. SELEPARINA [Concomitant]
     Active Substance: NADROPARIN CALCIUM
     Dosage: 0.8 ML, UNKNOWN
     Route: 058
  2. ZYLORIC [Concomitant]
     Active Substance: ALLOPURINOL
     Dosage: 300 MG, UNKNOWN
     Route: 048
  3. DEPALGOS [Concomitant]
     Active Substance: ACETAMINOPHEN\OXYCODONE HYDROCHLORIDE
     Dosage: 330 MG, UNKNOWN
     Route: 048
  4. GEMZAR [Suspect]
     Active Substance: GEMCITABINE HYDROCHLORIDE
     Indication: LUNG ADENOCARCINOMA
     Dosage: 1500 MG, UNKNOWN
     Route: 042
     Dates: start: 20140711, end: 20140717
  5. CARBOPLATIN. [Suspect]
     Active Substance: CARBOPLATIN
     Indication: LUNG ADENOCARCINOMA
     Dosage: 230 MG, UNKNOWN
     Route: 042
     Dates: start: 20140711, end: 20140717
  6. TICLOPIDINE [Concomitant]
     Active Substance: TICLOPIDINE
     Dosage: 1 DF, UNKNOWN
     Route: 048
  7. MODURETIC 5-50 [Concomitant]
     Active Substance: AMILORIDE HYDROCHLORIDE\HYDROCHLOROTHIAZIDE
     Dosage: 55 MG, UNKNOWN
     Route: 048
  8. MOTILIUM [Concomitant]
     Active Substance: DOMPERIDONE
     Dosage: 2 DF, UNKNOWN
     Route: 048
  9. MYCOSTATIN [Concomitant]
     Active Substance: NYSTATIN
     Dosage: 3 DF, UNKNOWN
     Route: 048
  10. SOLDESAM [Concomitant]
     Active Substance: DEXAMETHASONE
     Dosage: 32 DF, UNKNOWN
     Route: 048
  11. RANITIDINE [Concomitant]
     Active Substance: RANITIDINE\RANITIDINE HYDROCHLORIDE
     Dosage: 300 MG, UNKNOWN
     Route: 048
  12. ALIFLUS [Concomitant]
     Active Substance: FLUTICASONE PROPIONATE\SALMETEROL XINAFOATE
     Dosage: 2 DF, UNKNOWN
  13. SEROQUEL [Concomitant]
     Active Substance: QUETIAPINE FUMARATE
     Dosage: 50 MG, UNKNOWN
     Route: 048
  14. NEBIVOLOL [Concomitant]
     Active Substance: NEBIVOLOL
     Dosage: 2.5 MG, UNKNOWN
     Route: 048

REACTIONS (5)
  - Pyrexia [Recovering/Resolving]
  - Diarrhoea [Recovering/Resolving]
  - Gastrointestinal disorder [Recovering/Resolving]
  - Off label use [Recovered/Resolved]
  - Pancytopenia [Recovering/Resolving]

NARRATIVE: CASE EVENT DATE: 20140711
